FAERS Safety Report 9471387 (Version 1)
Quarter: 2013Q3

REPORT INFORMATION
  Report Type: Spontaneous
  Country: DE (occurrence: DE)
  Receive Date: 20130822
  Receipt Date: 20130822
  Transmission Date: 20140515
  Serious: Yes (Other)
  Sender: FDA-Public Use
  Company Number: DE-UCBSA-095521

PATIENT
  Sex: Male

DRUGS (2)
  1. VIMPAT [Suspect]
     Indication: CONVULSION
  2. LEVETIRACETAM [Suspect]
     Indication: CONVULSION

REACTIONS (5)
  - Sick sinus syndrome [Unknown]
  - Arrhythmia [Unknown]
  - Syncope [Unknown]
  - Irritability [Unknown]
  - Aggression [Unknown]
